FAERS Safety Report 6507333-3 (Version None)
Quarter: 2009Q4

REPORT INFORMATION
  Report Type: 
  Country: None (occurrence: None)
  Receive Date: 20091221
  Receipt Date: 20091218
  Transmission Date: 20100525
  Serious: Yes (Hospitalization)
  Sender: FDA-Public Use
  Company Number: PHHO2009ZA09947

PATIENT
  Sex: Male
  Weight: 87 kg

DRUGS (8)
  1. STARLIX [Suspect]
     Dosage: LEVEL 1
     Route: 048
  2. STARLIX [Suspect]
     Dosage: LEVEL 2
     Route: 048
     Dates: start: 20020527, end: 20090403
  3. STARLIX [Suspect]
     Dosage: NO TREATMENT
     Dates: end: 20090810
  4. STARLIX [Suspect]
     Dosage: LEVEL 2
     Route: 048
     Dates: start: 20090811, end: 20090910
  5. DIOVAN T30230+CAPS [Suspect]
     Indication: CARDIOVASCULAR DISORDER
     Dosage: LEVEL 1
     Route: 048
  6. DIOVAN T30230+CAPS [Suspect]
     Dosage: LEVEL 2
     Route: 048
     Dates: start: 20090803
  7. DIOVAN T30230+CAPS [Suspect]
     Dosage: NO TREATMENT
     Dates: start: 20090804, end: 20090810
  8. DIOVAN T30230+CAPS [Suspect]
     Dosage: LEVEL 2
     Route: 048
     Dates: start: 20090811, end: 20090910

REACTIONS (4)
  - C-REACTIVE PROTEIN INCREASED [None]
  - PNEUMONIA [None]
  - PROCALCITONIN INCREASED [None]
  - WHITE BLOOD CELL COUNT INCREASED [None]
